FAERS Safety Report 5252115-6 (Version None)
Quarter: 2007Q1

REPORT INFORMATION
  Report Type: 
  Country: None (occurrence: None)
  Receive Date: 20070226
  Receipt Date: 20070205
  Transmission Date: 20070707
  Serious: Yes (Hospitalization)
  Sender: FDA-Public Use
  Company Number: B0458483A

PATIENT
  Age: 59 Year
  Sex: Female

DRUGS (3)
  1. PAXIL [Suspect]
     Indication: ANXIETY
  2. ALPRAZOLAM [Suspect]
     Indication: ANXIETY
     Dosage: .5 MG TWICE PER DAY ORAL
     Route: 048
  3. CLORAZEPATE DIPOTASSIUM [Concomitant]

REACTIONS (5)
  - DYSTONIA [None]
  - EXTRAPYRAMIDAL DISORDER [None]
  - MUSCLE CONTRACTURE [None]
  - SENSORY DISTURBANCE [None]
  - SWOLLEN TONGUE [None]
